FAERS Safety Report 13967473 (Version 4)
Quarter: 2019Q4

REPORT INFORMATION
  Report Type: Spontaneous
  Country: US (occurrence: US)
  Receive Date: 20170914
  Receipt Date: 20191104
  Transmission Date: 20200122
  Serious: Yes (Other)
  Sender: FDA-Public Use
  Company Number: US-PFIZER INC-2017396759

PATIENT
  Sex: Female

DRUGS (1)
  1. IBRANCE [Suspect]
     Active Substance: PALBOCICLIB
     Dosage: 125 MG, UNK

REACTIONS (6)
  - White blood cell count abnormal [Unknown]
  - Pneumonitis [Unknown]
  - Anaemia [Unknown]
  - Cough [Not Recovered/Not Resolved]
  - Interstitial lung disease [Unknown]
  - Hypersensitivity [Unknown]
